FAERS Safety Report 6936900-8 (Version None)
Quarter: 2010Q3

REPORT INFORMATION
  Report Type: 
  Country: None (occurrence: None)
  Receive Date: 20100823
  Receipt Date: 20100818
  Transmission Date: 20110219
  Serious: Yes (Other)
  Sender: FDA-Public Use
  Company Number: US-BRISTOL-MYERS SQUIBB COMPANY-15244791

PATIENT
  Age: 67 Year
  Sex: Male
  Weight: 78 kg

DRUGS (4)
  1. CARBOPLATIN [Suspect]
     Indication: METASTASES TO BONE
  2. PEMETREXED DISODIUM [Suspect]
     Indication: METASTASES TO BONE
  3. BEVACIZUMAB [Suspect]
     Indication: METASTASES TO BONE
  4. RADIATION THERAPY [Suspect]
     Indication: METASTASES TO CENTRAL NERVOUS SYSTEM
     Dosage: 1 DF=37.5GY/15 FRACTION QD 5DAYS A WK, X 3WKS EXTERNAL BEAM NOS 24MAY10-ONG
     Dates: start: 20100524

REACTIONS (1)
  - DYSPNOEA AT REST [None]
